FAERS Safety Report 5334455-5 (Version None)
Quarter: 2007Q2

REPORT INFORMATION
  Report Type: 
  Country: None (occurrence: None)
  Receive Date: 20070522
  Receipt Date: 20070501
  Transmission Date: 20071010
  Serious: Yes (Hospitalization)
  Sender: FDA-Public Use
  Company Number: 2007-01288

PATIENT
  Age: 52 Year
  Sex: Male

DRUGS (33)
  1. VELCADE [Suspect]
     Indication: MULTIPLE MYELOMA
     Dosage: 1.00 MG/M2, UNK, UNK
     Dates: start: 20060311, end: 20060318
  2. THALIDOMIDE [Suspect]
     Indication: MULTIPLE MYELOMA
     Dosage: 200.00 MG, UNK, UNK
     Dates: start: 20060311, end: 20060314
  3. DEXAMETHASONE [Suspect]
     Indication: MULTIPLE MYELOMA
     Dosage: 40.00 MG
     Dates: start: 20060311, end: 20060314
  4. CISPLATIN [Suspect]
     Indication: MULTIPLE MYELOMA
     Dosage: 10.00 MG/M2,
     Dates: start: 20060311, end: 20060314
  5. DOXORUBICIN HCL [Suspect]
     Indication: MULTIPLE MYELOMA
     Dosage: 10.00 MG/M2,
     Dates: start: 20060311, end: 20060314
  6. CYCLOPHOSPHAMIDE [Suspect]
     Indication: MULTIPLE MYELOMA
     Dosage: 400.00 MG/M2
     Dates: start: 20060311, end: 20060314
  7. ETOPOSIDE [Suspect]
     Indication: MULTIPLE MYELOMA
     Dosage: 40.00 MG/M2, UNK, UNK
     Dates: start: 20060311, end: 20060314
  8. ACYCLOVIR [Concomitant]
  9. MULTIVITAMINS (ERGOCALCIFEROL, PANTHENOL, NICOTINAMIDE, RIBOFLAVIN, TH [Concomitant]
  10. LORAZEPAM [Concomitant]
  11. COLACE (DOCUSATE SODIUM) [Concomitant]
  12. PROCRIT [Concomitant]
  13. PEPCID [Concomitant]
  14. G-CSF (GRANULOCYTE COLONY STIMULATING FACTOR) [Concomitant]
  15. DEXTROSE INFUSION FLUID 5% (GLUCOSE) [Concomitant]
  16. LEVOFLOXACIN [Concomitant]
  17. FLUCONAZOLE [Concomitant]
  18. FAMOTIDINE [Concomitant]
  19. ENOXAPARIN SODIUM [Concomitant]
  20. PANTOPRAZOLE SODIUM [Concomitant]
  21. DOCUSATE (DOCUSATE) [Concomitant]
  22. MAGNESIUM SULFATE [Concomitant]
  23. POTASSIUM CHLORIDE [Concomitant]
  24. SODIUM CHLORIDE [Concomitant]
  25. PROPOXYPHENE (DEXTROPROPOXYPHENE) [Concomitant]
  26. GRANISETRON  HCL [Concomitant]
  27. LACTULOSE [Concomitant]
  28. SODIUM CHLORIDE 0.9% [Concomitant]
  29. DIPHENHYDRAMINE HCL [Concomitant]
  30. VANCOMYCIN [Concomitant]
  31. CEFEPIME [Concomitant]
  32. PERUVIAN BALSAM (PERUVIAN BALSAM) CREAM [Concomitant]
  33. SODIUM PHOSPHATE (32 P) (SODIUM PHOSPHATE (32 P)) [Concomitant]

REACTIONS (8)
  - ANAEMIA [None]
  - C-REACTIVE PROTEIN INCREASED [None]
  - CONSTIPATION [None]
  - HAEMOPTYSIS [None]
  - HYPOTENSION [None]
  - MUCOSAL INFLAMMATION [None]
  - NAUSEA [None]
  - PYREXIA [None]
